FAERS Safety Report 8535484-0 (Version None)
Quarter: 2012Q3

REPORT INFORMATION
  Report Type: 
  Country: None (occurrence: None)
  Receive Date: 20120718
  Receipt Date: 20120718
  Transmission Date: 20120928
  Serious: Yes (Other)
  Sender: FDA-Public Use
  Company Number: None

PATIENT
  Age: 77 Year
  Sex: Female
  Weight: 52.3451 kg

DRUGS (3)
  1. AMLODIPINE BESYLATE [Suspect]
     Indication: HYPERTENSION
     Dosage: 5MG NORVASC 1X DAILY P.O.
     Route: 048
     Dates: start: 20120327, end: 20120423
  2. LISINOPRIL [Concomitant]
  3. COREG [Concomitant]

REACTIONS (4)
  - SENSORY DISTURBANCE [None]
  - JOINT SWELLING [None]
  - WEIGHT INCREASED [None]
  - OEDEMA PERIPHERAL [None]
